FAERS Safety Report 23882430 (Version 1)
Quarter: 2024Q2

REPORT INFORMATION
  Report Type: Spontaneous
  Country: US (occurrence: US)
  Receive Date: 20240522
  Receipt Date: 20240522
  Transmission Date: 20240716
  Serious: No
  Sender: FDA-Public Use
  Company Number: US-STRIDES ARCOLAB LIMITED-2024SP002282

PATIENT
  Sex: Female

DRUGS (1)
  1. CYCLOSPORINE [Suspect]
     Active Substance: CYCLOSPORINE
     Indication: Product used for unknown indication
     Dosage: UNK, QD (PATIENT MISTAKENLY TOOK TWO CYCLOSPORINE 100 MG CAPSULES AT ONCE INSTEAD OF ONE IN THE MORN
     Route: 065

REACTIONS (1)
  - Wrong technique in product usage process [Unknown]
